FAERS Safety Report 17875204 (Version 1)
Quarter: 2020Q2

REPORT INFORMATION
  Report Type: Spontaneous
  Country: US (occurrence: US)
  Receive Date: 20200608
  Receipt Date: 20200608
  Transmission Date: 20200714
  Serious: No
  Sender: FDA-Public Use
  Company Number: None

PATIENT
  Sex: Male

DRUGS (1)
  1. DESCOVY [Suspect]
     Active Substance: EMTRICITABINE\TENOFOVIR ALAFENAMIDE FUMARATE
     Indication: EXPOSURE TO COMMUNICABLE DISEASE
     Dosage: ?          OTHER DOSE:200/25MG;?
     Route: 048
     Dates: start: 20200219

REACTIONS (1)
  - Neutropenia [None]
